FAERS Safety Report 13898682 (Version 1)
Quarter: 2017Q3

REPORT INFORMATION
  Report Type: Spontaneous
  Country: US (occurrence: US)
  Receive Date: 20170824
  Receipt Date: 20170824
  Transmission Date: 20171127
  Serious: No
  Sender: FDA-Public Use
  Company Number: US-GLAXOSMITHKLINE-PHEH2014US005371

PATIENT
  Sex: Female

DRUGS (12)
  1. CATAFLAM [Suspect]
     Active Substance: DICLOFENAC POTASSIUM
     Indication: PRODUCT USED FOR UNKNOWN INDICATION
     Dosage: UNK UNKNOWN, UNK
  2. ATENOLOL TABLET [Concomitant]
     Active Substance: ATENOLOL
     Indication: HEART RATE INCREASED
     Dosage: 25 MG, QD
  3. PARACETAMOL TABLET [Concomitant]
     Active Substance: ACETAMINOPHEN
     Indication: PAIN
     Dosage: 32.5 MG, PRN
     Route: 048
  4. CYCLOBENZAPRINE TABLET [Concomitant]
     Indication: MUSCLE RELAXANT THERAPY
     Dosage: 10 MG, QD
     Route: 048
  5. LYRICA [Suspect]
     Active Substance: PREGABALIN
     Indication: PRODUCT USED FOR UNKNOWN INDICATION
     Dosage: 75 MG, BID
     Route: 048
  6. LYRICA [Suspect]
     Active Substance: PREGABALIN
     Dosage: 180 UNK, UNK
     Route: 048
     Dates: start: 20160609
  7. LORAZEPAM. [Concomitant]
     Active Substance: LORAZEPAM
     Indication: ANXIETY
     Dosage: 1 DF, QD
     Route: 048
  8. FLUOXETINE TABLET [Concomitant]
     Indication: DEPRESSION
     Dosage: 20 MG, QD
  9. TRAMADOL TABLET [Concomitant]
     Active Substance: TRAMADOL
     Indication: PAIN
     Dosage: 37.5 MG, PRN
  10. TRAZODONE TABLET [Concomitant]
     Indication: SOMNOLENCE
     Dosage: 100 MG, QD
  11. DICYCLOMINE TABLET [Concomitant]
     Indication: MUSCLE RELAXANT THERAPY
     Dosage: 20 MG, QD
     Route: 048
  12. ATORVASTATIN TABLET [Concomitant]
     Active Substance: ATORVASTATIN
     Indication: BLOOD CHOLESTEROL INCREASED
     Dosage: 10 MG, QD
     Route: 048

REACTIONS (3)
  - Drug hypersensitivity [Unknown]
  - Pruritus [Unknown]
  - Feeling abnormal [Unknown]
